FAERS Safety Report 20428508 (Version 1)
Quarter: 2022Q1

REPORT INFORMATION
  Report Type: Other
  Country: NL (occurrence: NL)
  Receive Date: 20220204
  Receipt Date: 20220204
  Transmission Date: 20220423
  Serious: Yes (Hospitalization, Other)
  Sender: FDA-Public Use
  Company Number: NL-TEVA-2022-NL-1998979

PATIENT

DRUGS (4)
  1. DEXAMETHASONE [Suspect]
     Active Substance: DEXAMETHASONE
     Indication: COVID-19 pneumonia
     Dosage: 6 MILLIGRAM DAILY;
     Route: 065
  2. TOCILIZUMAB [Suspect]
     Active Substance: TOCILIZUMAB
     Indication: COVID-19 pneumonia
     Dosage: RECEIVED ON THE DAY OF INTUBATION
     Route: 065
  3. NEOSTIGMINE [Concomitant]
     Active Substance: NEOSTIGMINE
     Indication: Abdominal distension
     Dosage: 2MG/HR FOR 24HRS
     Route: 065
  4. NEOSTIGMINE [Concomitant]
     Active Substance: NEOSTIGMINE
     Indication: Constipation

REACTIONS (9)
  - Off label use [Unknown]
  - Splenic abscess [Recovered/Resolved]
  - Large intestine perforation [Recovered/Resolved]
  - Sepsis [Recovered/Resolved]
  - Abscess intestinal [Recovered/Resolved]
  - Necrosis ischaemic [Recovered/Resolved]
  - Gastrointestinal necrosis [Unknown]
  - Intestinal ulcer [Unknown]
  - Intestinal ischaemia [Unknown]
